FAERS Safety Report 18980905 (Version 2)
Quarter: 2021Q1

REPORT INFORMATION
  Report Type: Spontaneous
  Country: US (occurrence: US)
  Receive Date: 20210308
  Receipt Date: 20210319
  Transmission Date: 20210420
  Serious: Yes (Other)
  Sender: FDA-Public Use
  Company Number: US-GW PHARMA-202103USGW00981

PATIENT

DRUGS (3)
  1. EPIDIOLEX [Suspect]
     Active Substance: CANNABIDIOL
     Indication: LENNOX-GASTAUT SYNDROME
     Dosage: 8.60 MG/KG/DAY, 160 MILLIGRAM, BID
     Dates: start: 201904
  2. PULMOZYME [Concomitant]
     Active Substance: DORNASE ALFA
     Indication: PRODUCT USED FOR UNKNOWN INDICATION
     Dosage: 1 VIAL (2.5 MG) VIA NEBULIZER TWICE DAILY AS NEEDED
     Dates: start: 202103
  3. HUMIRA [Concomitant]
     Active Substance: ADALIMUMAB
     Indication: CROHN^S DISEASE
     Dosage: 40 MG SQ EVERY 2 WEEKS
     Route: 065
     Dates: start: 20200201

REACTIONS (5)
  - Seizure [Not Recovered/Not Resolved]
  - Product distribution issue [Unknown]
  - Product dose omission issue [Unknown]
  - Pneumonia [Unknown]
  - Emergency care [Unknown]

NARRATIVE: CASE EVENT DATE: 2021
